FAERS Safety Report 18838678 (Version 1)
Quarter: 2021Q1

REPORT INFORMATION
  Report Type: Spontaneous
  Country: US (occurrence: US)
  Receive Date: 20210203
  Receipt Date: 20210203
  Transmission Date: 20210419
  Serious: No
  Sender: FDA-Public Use
  Company Number: US-ALLERGAN-2048950US

PATIENT
  Sex: Male

DRUGS (9)
  1. VALSARTAN. [Concomitant]
     Active Substance: VALSARTAN
  2. ALLOPURINOL. [Concomitant]
     Active Substance: ALLOPURINOL
  3. BOTOX [Suspect]
     Active Substance: ONABOTULINUMTOXINA
     Indication: BLEPHAROSPASM
     Dosage: 15 UNITS, SINGLE
  4. IBUPROFEN. [Concomitant]
     Active Substance: IBUPROFEN
  5. TAMSULOSIN [Concomitant]
     Active Substance: TAMSULOSIN
  6. ATENOLOL. [Concomitant]
     Active Substance: ATENOLOL
  7. OMEPRAZOLE. [Concomitant]
     Active Substance: OMEPRAZOLE
  8. AMLODIPINE [Concomitant]
     Active Substance: AMLODIPINE BESYLATE
  9. MELOXICAM. [Concomitant]
     Active Substance: MELOXICAM

REACTIONS (1)
  - Drug ineffective [Unknown]
